FAERS Safety Report 19662134 (Version 3)
Quarter: 2021Q4

REPORT INFORMATION
  Report Type: Report from Study
  Country: US (occurrence: US)
  Receive Date: 20210805
  Receipt Date: 20211201
  Transmission Date: 20220303
  Serious: No
  Sender: FDA-Public Use
  Company Number: NVSC2021US170907

PATIENT
  Age: 50 Year
  Sex: Male

DRUGS (4)
  1. COSENTYX [Suspect]
     Active Substance: SECUKINUMAB
     Indication: Psoriatic arthropathy
     Dosage: 150 MG (ONCE WEEK FOR 0,1,2,3,4 THAN ONCE EVERY 4 WEEKS)
     Route: 058
  2. COSENTYX [Suspect]
     Active Substance: SECUKINUMAB
     Dosage: 150 MG, QMO
     Route: 058
  3. COSENTYX [Suspect]
     Active Substance: SECUKINUMAB
     Route: 058
  4. COSENTYX [Suspect]
     Active Substance: SECUKINUMAB
     Dosage: 150MG,(ONCE WEEKLY FOR 5 WEEKS ,THE ONCE EVERY 4 WEEKS)
     Route: 058

REACTIONS (7)
  - Back pain [Unknown]
  - Neck pain [Unknown]
  - Therapeutic product effect incomplete [Unknown]
  - Product dose omission issue [Unknown]
  - Pain in extremity [Unknown]
  - Symptom recurrence [Unknown]
  - Swelling [Unknown]

NARRATIVE: CASE EVENT DATE: 20210726
